FAERS Safety Report 25260584 (Version 1)
Quarter: 2025Q2

REPORT INFORMATION
  Report Type: Spontaneous
  Country: US (occurrence: US)
  Receive Date: 20250501
  Receipt Date: 20250501
  Transmission Date: 20250716
  Serious: Yes (Life-Threatening)
  Sender: NOVO NORDISK
  Company Number: US-NOVOPROD-1406937

PATIENT
  Sex: Male

DRUGS (1)
  1. OZEMPIC [Suspect]
     Active Substance: SEMAGLUTIDE
     Indication: Product used for unknown indication
     Route: 058

REACTIONS (1)
  - Near death experience [Unknown]

NARRATIVE: CASE EVENT DATE: 20250404
